FAERS Safety Report 8332922-3 (Version None)
Quarter: 2012Q2

REPORT INFORMATION
  Report Type: 
  Country: None (occurrence: None)
  Receive Date: 20120503
  Receipt Date: 20120426
  Transmission Date: 20120825
  Serious: Yes (Hospitalization)
  Sender: FDA-Public Use
  Company Number: GB-SANOFI-AVENTIS-2012SA029360

PATIENT
  Age: 85 Year
  Sex: Female

DRUGS (7)
  1. PANTOPRAZOLE [Concomitant]
     Dosage: DOSE:40 UNIT(S)
     Dates: start: 20100910
  2. RISEDRONATE SODIUM [Suspect]
     Dosage: DOSE :35 UNSPECIFIED UNIT
     Route: 065
  3. ATORVASTATIN CALCIUM [Concomitant]
     Dosage: DOSE:40 UNIT(S)
     Dates: start: 20101004
  4. ATENOLOL [Concomitant]
     Dosage: DOSE:50 UNIT(S)
     Dates: start: 20100226
  5. ATENOLOL AND CHLORTHALIDONE [Suspect]
     Dosage: DOSE: 75 UNSPECIFIED UNIT
     Route: 065
     Dates: start: 20110513
  6. RAMIPRIL [Concomitant]
     Dosage: DOSE:2.5 UNIT(S)
     Dates: start: 20100226
  7. CALCEOS [Concomitant]
     Dosage: DOSE:1 UNIT(S)
     Dates: start: 20080128

REACTIONS (3)
  - OESOPHAGITIS [None]
  - FALL [None]
  - VOMITING [None]
